FAERS Safety Report 22922038 (Version 2)
Quarter: 2023Q4

REPORT INFORMATION
  Report Type: Report from Study
  Country: JP (occurrence: JP)
  Receive Date: 20230908
  Receipt Date: 20231026
  Transmission Date: 20240109
  Serious: Yes (Hospitalization)
  Sender: FDA-Public Use
  Company Number: JP-002147023-NVSJ2023JP013376

PATIENT
  Age: 13 Year
  Sex: Male

DRUGS (32)
  1. ILARIS [Suspect]
     Active Substance: CANAKINUMAB
     Indication: Tumour necrosis factor receptor-associated periodic syndrome
     Dosage: 48 MG
     Route: 058
     Dates: start: 20180823
  2. ILARIS [Suspect]
     Active Substance: CANAKINUMAB
     Dosage: 48 MG
     Route: 058
     Dates: start: 20180920
  3. ILARIS [Suspect]
     Active Substance: CANAKINUMAB
     Dosage: 48 MG
     Route: 058
     Dates: start: 20181018
  4. ILARIS [Suspect]
     Active Substance: CANAKINUMAB
     Dosage: 48 MG
     Route: 058
     Dates: start: 20181114
  5. ILARIS [Suspect]
     Active Substance: CANAKINUMAB
     Dosage: 50 MG
     Route: 058
     Dates: start: 20181213
  6. ILARIS [Suspect]
     Active Substance: CANAKINUMAB
     Dosage: 50 MG
     Route: 058
     Dates: start: 20190110
  7. ILARIS [Suspect]
     Active Substance: CANAKINUMAB
     Dosage: 50 MG
     Route: 058
     Dates: start: 20190208
  8. ILARIS [Suspect]
     Active Substance: CANAKINUMAB
     Dosage: 50 MG
     Route: 058
     Dates: start: 20190314
  9. ILARIS [Suspect]
     Active Substance: CANAKINUMAB
     Dosage: 50 MG
     Route: 058
     Dates: start: 20190411
  10. ILARIS [Suspect]
     Active Substance: CANAKINUMAB
     Dosage: 50 MG
     Route: 058
     Dates: start: 20190510
  11. ILARIS [Suspect]
     Active Substance: CANAKINUMAB
     Dosage: 50 MG
     Route: 058
     Dates: start: 20190607
  12. ILARIS [Suspect]
     Active Substance: CANAKINUMAB
     Dosage: 50 MG
     Route: 058
     Dates: start: 20190705
  13. ILARIS [Suspect]
     Active Substance: CANAKINUMAB
     Dosage: 52 MG
     Route: 058
     Dates: start: 20190802
  14. ILARIS [Suspect]
     Active Substance: CANAKINUMAB
     Dosage: 52 MG
     Route: 058
     Dates: start: 20190905
  15. ILARIS [Suspect]
     Active Substance: CANAKINUMAB
     Dosage: 54 MG
     Route: 058
     Dates: start: 20191011
  16. ILARIS [Suspect]
     Active Substance: CANAKINUMAB
     Dosage: 55 MG
     Route: 058
     Dates: start: 20191108
  17. ILARIS [Suspect]
     Active Substance: CANAKINUMAB
     Dosage: 53 MG
     Route: 058
     Dates: start: 20191216
  18. ILARIS [Suspect]
     Active Substance: CANAKINUMAB
     Dosage: 55 MG
     Route: 058
     Dates: start: 20200106
  19. ILARIS [Suspect]
     Active Substance: CANAKINUMAB
     Dosage: 55 MG
     Route: 058
     Dates: start: 20200206
  20. ILARIS [Suspect]
     Active Substance: CANAKINUMAB
     Dosage: 55 MG
     Route: 058
     Dates: start: 20200312
  21. ILARIS [Suspect]
     Active Substance: CANAKINUMAB
     Dosage: 55 MG
     Route: 058
     Dates: start: 20200416
  22. ILARIS [Suspect]
     Active Substance: CANAKINUMAB
     Dosage: 57 MG
     Route: 058
     Dates: start: 20200521
  23. ILARIS [Suspect]
     Active Substance: CANAKINUMAB
     Dosage: 55 MG
     Route: 058
     Dates: start: 20200625
  24. ILARIS [Suspect]
     Active Substance: CANAKINUMAB
     Dosage: 55 MG
     Route: 058
     Dates: start: 20200806
  25. ILARIS [Suspect]
     Active Substance: CANAKINUMAB
     Dosage: 55 MG
     Route: 058
     Dates: start: 20200917
  26. ILARIS [Suspect]
     Active Substance: CANAKINUMAB
     Dosage: 66 MG
     Route: 058
     Dates: start: 20220901
  27. ILARIS [Suspect]
     Active Substance: CANAKINUMAB
     Dosage: 70 MG
     Route: 058
     Dates: start: 20221027
  28. ILARIS [Suspect]
     Active Substance: CANAKINUMAB
     Dosage: 70 MG
     Route: 058
     Dates: start: 20221222
  29. ILARIS [Suspect]
     Active Substance: CANAKINUMAB
     Dosage: 110 MG
     Route: 058
     Dates: start: 20230216
  30. ILARIS [Suspect]
     Active Substance: CANAKINUMAB
     Dosage: 76 MG
     Route: 058
     Dates: start: 20230403
  31. ILARIS [Suspect]
     Active Substance: CANAKINUMAB
     Dosage: 78 MG
     Route: 058
     Dates: start: 20230615
  32. ILARIS [Suspect]
     Active Substance: CANAKINUMAB
     Dosage: 70 MG
     Route: 058
     Dates: start: 20230724, end: 20230724

REACTIONS (3)
  - Liver abscess [Recovered/Resolved]
  - Pyrexia [Unknown]
  - Malaise [Unknown]

NARRATIVE: CASE EVENT DATE: 20230717
